FAERS Safety Report 15732929 (Version 2)
Quarter: 2019Q2

REPORT INFORMATION
  Report Type: Spontaneous
  Country: US (occurrence: US)
  Receive Date: 20181218
  Receipt Date: 20190429
  Transmission Date: 20190711
  Serious: No
  Sender: FDA-Public Use
  Company Number: US-BIOGEN-2018BI00668726

PATIENT
  Sex: Female

DRUGS (1)
  1. TYSABRI [Suspect]
     Active Substance: NATALIZUMAB
     Indication: MULTIPLE SCLEROSIS
     Route: 050

REACTIONS (22)
  - Constipation [Unknown]
  - Blood creatinine increased [Unknown]
  - Thyroid mass [Unknown]
  - Glomerular filtration rate increased [Unknown]
  - Renal disorder [Unknown]
  - Abdominal pain upper [Unknown]
  - Micturition urgency [Unknown]
  - Stress urinary incontinence [Unknown]
  - Decreased nasolabial fold [Unknown]
  - Rales [Unknown]
  - Red blood cell count increased [Unknown]
  - Red cell distribution width increased [Unknown]
  - Fall [Recovered/Resolved]
  - Tremor [Unknown]
  - Cataract [Unknown]
  - Dysphagia [Unknown]
  - Multiple sclerosis relapse [Unknown]
  - Sinus disorder [Unknown]
  - Dyspepsia [Unknown]
  - Arthritis [Unknown]
  - Blood albumin increased [Unknown]
  - Tinnitus [Unknown]
